FAERS Safety Report 15682668 (Version 2)
Quarter: 2018Q4

REPORT INFORMATION
  Report Type: Report from Study
  Country: US (occurrence: US)
  Receive Date: 20181203
  Receipt Date: 20181228
  Transmission Date: 20190205
  Serious: Yes (Hospitalization, Other)
  Sender: FDA-Public Use
  Company Number: US-GILEAD-2018-0376874

PATIENT
  Age: 71 Year
  Sex: Male
  Weight: 78.91 kg

DRUGS (1)
  1. IDELALISIB [Suspect]
     Active Substance: IDELALISIB
     Indication: B-CELL LYMPHOMA
     Dosage: 150MG 1 TAB DAILY ALTERNATING WITH 2 TABS DAILY
     Route: 065
     Dates: start: 20141008, end: 20180901

REACTIONS (3)
  - Osteomyelitis [Not Recovered/Not Resolved]
  - Osteofibroma [Not Recovered/Not Resolved]
  - Bursitis [Recovered/Resolved]

NARRATIVE: CASE EVENT DATE: 201808
